FAERS Safety Report 12126848 (Version 4)
Quarter: 2016Q3

REPORT INFORMATION
  Report Type: Report from Study
  Country: US (occurrence: US)
  Receive Date: 20160229
  Receipt Date: 20160914
  Transmission Date: 20161109
  Serious: Yes (Death, Hospitalization)
  Sender: FDA-Public Use
  Company Number: US-ACTELION-A-NJ2015-125568

PATIENT
  Age: 57 Year
  Sex: Male

DRUGS (6)
  1. ADCIRCA [Concomitant]
     Active Substance: TADALAFIL
  2. RIOCIGUAT [Concomitant]
     Active Substance: RIOCIGUAT
  3. TREPROSTINIL DIOLAMIN [Suspect]
     Active Substance: TREPROSTINIL DIOLAMINE
     Indication: PRODUCT USED FOR UNKNOWN INDICATION
     Dosage: 2.75 MG, UNK
     Route: 065
  4. TRACLEER [Suspect]
     Active Substance: BOSENTAN
     Indication: PULMONARY ARTERIAL HYPERTENSION
     Dosage: 125 MG, UNK
     Route: 048
     Dates: start: 20091112, end: 20160902
  5. FLOLAN [Concomitant]
     Active Substance: EPOPROSTENOL SODIUM
  6. COUMADIN [Concomitant]
     Active Substance: WARFARIN SODIUM

REACTIONS (6)
  - Death [Fatal]
  - Bradycardia [Unknown]
  - Heart rate increased [Unknown]
  - Cardiac failure [Unknown]
  - Disease progression [Unknown]
  - Insomnia [Unknown]

NARRATIVE: CASE EVENT DATE: 20160902
